FAERS Safety Report 10548591 (Version 1)
Quarter: 2014Q4

REPORT INFORMATION
  Report Type: Spontaneous
  Country: US (occurrence: None)
  Receive Date: 20141027
  Receipt Date: 20141027
  Transmission Date: 20150529
  Serious: Yes (Life-Threatening)
  Sender: FDA-Public Use
  Company Number: None

PATIENT
  Age: 20 Year
  Sex: Female
  Weight: 109 kg

DRUGS (2)
  1. ETHINYL ESTRADIOL-NORGESTIMATE (TRI-PREVIFEM) [Concomitant]
  2. TRI-PREVIFEM [Suspect]
     Active Substance: ETHINYL ESTRADIOL\NORGESTIMATE

REACTIONS (4)
  - Dilatation ventricular [None]
  - Hypoxia [None]
  - Pulmonary embolism [None]
  - Haemodynamic instability [None]

NARRATIVE: CASE EVENT DATE: 20140915
